FAERS Safety Report 10357457 (Version 1)
Quarter: 2014Q3

REPORT INFORMATION
  Report Type: Spontaneous
  Country: GB (occurrence: GB)
  Receive Date: 20140801
  Receipt Date: 20140801
  Transmission Date: 20150326
  Serious: Yes (Hospitalization, Other)
  Sender: FDA-Public Use
  Company Number: GB-PFIZER INC-2014210603

PATIENT
  Age: 42 Year
  Sex: Male

DRUGS (8)
  1. CANDESARTAN [Concomitant]
     Active Substance: CANDESARTAN
     Dosage: UNK
  2. ATORVASTATIN [Concomitant]
     Active Substance: ATORVASTATIN
     Indication: CONVULSION
     Dosage: UNK
  3. SIMVASTATIN. [Concomitant]
     Active Substance: SIMVASTATIN
     Dosage: UNK
  4. AMLODIPINE [Concomitant]
     Active Substance: AMLODIPINE BESYLATE
     Dosage: UNK
  5. PHENYTOIN. [Suspect]
     Active Substance: PHENYTOIN
     Indication: CONVULSION
     Dosage: 300 MG, UNK
     Route: 048
     Dates: start: 20140610, end: 20140714
  6. LISINOPRIL. [Concomitant]
     Active Substance: LISINOPRIL
     Dosage: UNK
  7. CLOPIDOGREL [Concomitant]
     Active Substance: CLOPIDOGREL BISULFATE
     Dosage: UNK
  8. MOXONIDINE [Concomitant]
     Active Substance: MOXONIDINE
     Dosage: UNK

REACTIONS (2)
  - Angioedema [Recovering/Resolving]
  - Rash [Recovering/Resolving]

NARRATIVE: CASE EVENT DATE: 20140712
